FAERS Safety Report 12915168 (Version 1)
Quarter: 2016Q4

REPORT INFORMATION
  Report Type: Spontaneous
  Country: US (occurrence: US)
  Receive Date: 20161106
  Receipt Date: 20161106
  Transmission Date: 20170207
  Serious: No
  Sender: FDA-Public Use
  Company Number: US-RELYPSA-RLY2016002561

PATIENT
  Sex: Male

DRUGS (1)
  1. VELTASSA [Suspect]
     Active Substance: PATIROMER
     Indication: PRODUCT USED FOR UNKNOWN INDICATION
     Dosage: UNKNOWN
     Route: 065
     Dates: start: 20160902

REACTIONS (6)
  - Muscle spasms [Unknown]
  - Heart rate increased [Unknown]
  - Insomnia [Unknown]
  - Hypotension [Unknown]
  - Mobility decreased [Unknown]
  - Pain [Unknown]

NARRATIVE: CASE EVENT DATE: 20160911
